FAERS Safety Report 5192781-7 (Version None)
Quarter: 2006Q4

REPORT INFORMATION
  Report Type: 
  Country: None (occurrence: None)
  Receive Date: 20061228
  Receipt Date: 20061215
  Transmission Date: 20070319
  Serious: Yes (Other)
  Sender: FDA-Public Use
  Company Number: NO-BAYER-200616497GDS

PATIENT
  Age: 54 Year
  Sex: Male

DRUGS (5)
  1. ASPIRIN [Suspect]
     Dosage: TOTAL DAILY DOSE: 75 MG
  2. VENLAFAXINE HCL [Suspect]
     Indication: MAJOR DEPRESSION
  3. ALIMEMAZINE [Suspect]
  4. MIANSERIN [Concomitant]
     Indication: SLEEP DISORDER
     Dosage: TOTAL DAILY DOSE: 30 MG
  5. NITRAZEPAM [Concomitant]

REACTIONS (3)
  - ASTHMA [None]
  - COUGH [None]
  - DRUG EFFECT DECREASED [None]
